FAERS Safety Report 23594105 (Version 3)
Quarter: 2024Q2

REPORT INFORMATION
  Report Type: Spontaneous
  Country: US (occurrence: US)
  Receive Date: 20240305
  Receipt Date: 20240425
  Transmission Date: 20240716
  Serious: Yes (Hospitalization)
  Sender: FDA-Public Use
  Company Number: US-BRISTOL-MYERS SQUIBB COMPANY-2024-034172

PATIENT
  Age: 95 Year
  Sex: Male
  Weight: 77.11 kg

DRUGS (2)
  1. REVLIMID [Suspect]
     Active Substance: LENALIDOMIDE
     Indication: Myelodysplastic syndrome
     Dosage: FREQUENCY: DAILY
     Route: 048
  2. REVLIMID [Suspect]
     Active Substance: LENALIDOMIDE
     Dosage: 5MG CAPSULE EVERY OTHER DAY FOR 28 DAY CYCLE
     Route: 048

REACTIONS (5)
  - White blood cell count decreased [Recovering/Resolving]
  - Urinary tract infection [Recovering/Resolving]
  - Bronchitis [Recovering/Resolving]
  - Anaemia [Recovering/Resolving]
  - Off label use [Unknown]
